FAERS Safety Report 9053609 (Version 1)
Quarter: 2013Q1

REPORT INFORMATION
  Report Type: Spontaneous
  Country: US (occurrence: None)
  Receive Date: 20130201
  Receipt Date: 20130201
  Transmission Date: 20140127
  Serious: No
  Sender: FDA-Public Use
  Company Number: None

PATIENT
  Age: 57 Year
  Sex: Female
  Weight: 106.14 kg

DRUGS (2)
  1. GEMCITABINE [Suspect]
     Indication: LUNG NEOPLASM MALIGNANT
     Route: 041
     Dates: start: 20130123, end: 20130123
  2. GEMCITABINE [Suspect]
     Route: 041

REACTIONS (11)
  - Eye pruritus [None]
  - Pruritus [None]
  - Chills [None]
  - Pain [None]
  - Headache [None]
  - Influenza [None]
  - Local swelling [None]
  - Erythema [None]
  - Rash [None]
  - Blister [None]
  - Neutrophil count decreased [None]
